FAERS Safety Report 15228387 (Version 1)
Quarter: 2018Q3

REPORT INFORMATION
  Report Type: Spontaneous
  Country: SI (occurrence: SI)
  Receive Date: 20180801
  Receipt Date: 20180801
  Transmission Date: 20181010
  Serious: Yes (Other)
  Sender: FDA-Public Use
  Company Number: SI-SA-2018SA201903

PATIENT
  Sex: Female

DRUGS (1)
  1. LIDOCAINE. [Suspect]
     Active Substance: LIDOCAINE
     Indication: ANALGESIC THERAPY
     Dosage: 20 MG/G

REACTIONS (7)
  - Dizziness [Unknown]
  - Product use issue [Unknown]
  - Vertigo [Unknown]
  - Overdose [Unknown]
  - Off label use [Unknown]
  - Somnolence [Unknown]
  - Arrhythmia [Unknown]
